FAERS Safety Report 24632100 (Version 1)
Quarter: 2024Q4

REPORT INFORMATION
  Report Type: Spontaneous
  Country: US (occurrence: US)
  Receive Date: 20241118
  Receipt Date: 20241118
  Transmission Date: 20250115
  Serious: No
  Sender: PFIZER
  Company Number: US-PFIZER INC-202400302117

PATIENT
  Sex: Female

DRUGS (1)
  1. ETRASIMOD [Suspect]
     Active Substance: ETRASIMOD
     Indication: Colitis microscopic
     Dosage: UNK

REACTIONS (3)
  - Dizziness [Unknown]
  - Blood pressure increased [Unknown]
  - Off label use [Unknown]
